FAERS Safety Report 6543627-3 (Version None)
Quarter: 2010Q1

REPORT INFORMATION
  Report Type: 
  Country: None (occurrence: None)
  Receive Date: 20100119
  Receipt Date: 20100119
  Transmission Date: 20100710
  Serious: Yes (Hospitalization)
  Sender: FDA-Public Use
  Company Number: None

PATIENT
  Age: 31 Year
  Sex: Male
  Weight: 72.6 kg

DRUGS (1)
  1. CLONAZEPAM [Suspect]
     Indication: BIPOLAR DISORDER
     Dosage: 20 MG ONCE PO
     Route: 048
     Dates: start: 20080731, end: 20100106

REACTIONS (2)
  - INCORRECT DOSE ADMINISTERED [None]
  - LETHARGY [None]
